FAERS Safety Report 22071717 (Version 1)
Quarter: 2023Q1

REPORT INFORMATION
  Report Type: Spontaneous
  Country: US (occurrence: US)
  Receive Date: 20230307
  Receipt Date: 20230307
  Transmission Date: 20230418
  Serious: No
  Sender: FDA-Public Use
  Company Number: US-BRISTOL-MYERS SQUIBB COMPANY-2023-033513

PATIENT

DRUGS (1)
  1. ABRAXANE [Suspect]
     Active Substance: PACLITAXEL
     Indication: Product used for unknown indication
     Dosage: FOR 200 MG DOSE (2 X 100 MG ABRAXANE VIALS USED)

REACTIONS (1)
  - Liver function test increased [Unknown]
